FAERS Safety Report 7971345-3 (Version None)
Quarter: 2011Q4

REPORT INFORMATION
  Report Type: 
  Country: None (occurrence: None)
  Receive Date: 20111212
  Receipt Date: 20111128
  Transmission Date: 20120403
  Serious: Yes (Other)
  Sender: FDA-Public Use
  Company Number: PHHY2011BR105946

PATIENT
  Age: 59 Year
  Sex: Female

DRUGS (2)
  1. ESTRADIOL VALERATE [Suspect]
     Indication: FEELING HOT
     Dosage: 1 DF, DAILY
  2. PROGESTRONE/ESTRADIOL [Suspect]

REACTIONS (5)
  - THYROID DISORDER [None]
  - BONE PAIN [None]
  - SWELLING [None]
  - HUNGER [None]
  - FEELING HOT [None]
